FAERS Safety Report 19090852 (Version 3)
Quarter: 2021Q2

REPORT INFORMATION
  Report Type: Report from Study
  Country: None (occurrence: US)
  Receive Date: 20210405
  Receipt Date: 20210523
  Transmission Date: 20210717
  Serious: Yes (Hospitalization)
  Sender: FDA-Public Use
  Company Number: US-ABBVIE-21K-163-3844196-00

PATIENT
  Age: 57 Year
  Sex: Male
  Weight: 99.88 kg

DRUGS (4)
  1. METHOTREXATE. [Concomitant]
     Active Substance: METHOTREXATE
     Indication: RHEUMATOID ARTHRITIS
  2. NARCOTIC OXYCODONE [Concomitant]
     Indication: SURGERY
  3. RINVOQ [Suspect]
     Active Substance: UPADACITINIB
     Indication: RHEUMATOID ARTHRITIS
     Route: 048
     Dates: start: 20201120, end: 20210331
  4. RINVOQ [Suspect]
     Active Substance: UPADACITINIB
     Route: 048
     Dates: start: 20210427

REACTIONS (5)
  - Dysuria [Recovering/Resolving]
  - Arthralgia [Not Recovered/Not Resolved]
  - Renal pain [Recovering/Resolving]
  - Ureteric obstruction [Recovering/Resolving]
  - Back pain [Not Recovered/Not Resolved]

NARRATIVE: CASE EVENT DATE: 202102
